FAERS Safety Report 5140334-9 (Version None)
Quarter: 2006Q4

REPORT INFORMATION
  Report Type: 
  Country: None (occurrence: None)
  Receive Date: 20061025
  Receipt Date: 20061017
  Transmission Date: 20070319
  Serious: Yes (Hospitalization)
  Sender: FDA-Public Use
  Company Number: HQWYE260218OCT06

PATIENT
  Age: 54 Year
  Sex: Male

DRUGS (4)
  1. RAPAMUNE [Suspect]
     Indication: PROPHYLAXIS AGAINST TRANSPLANT REJECTION
     Dosage: 3 MG 1X PER 1 DAY, ORAL
     Route: 048
     Dates: start: 20050823
  2. LASIX [Concomitant]
  3. CALCIUM CARBONATE [Concomitant]
  4. LOTENSIN [Concomitant]

REACTIONS (7)
  - BLOOD ALKALINE PHOSPHATASE INCREASED [None]
  - CALCINOSIS [None]
  - COUGH [None]
  - GRANULOMA [None]
  - HAEMATOCRIT DECREASED [None]
  - LUNG NEOPLASM [None]
  - PLATELET COUNT DECREASED [None]
